FAERS Safety Report 14603463 (Version 1)
Quarter: 2018Q1

REPORT INFORMATION
  Report Type: Report from Study
  Country: ES (occurrence: ES)
  Receive Date: 20180306
  Receipt Date: 20180306
  Transmission Date: 20180509
  Serious: Yes (Other)
  Sender: FDA-Public Use
  Company Number: ES-ASPEN-GLO2018ES001669

PATIENT
  Age: 7 Year
  Sex: Female
  Weight: 38.2 kg

DRUGS (6)
  1. CITARABINA [Interacting]
     Active Substance: CYTARABINE
     Indication: ACUTE LYMPHOCYTIC LEUKAEMIA
     Dosage: 82.5 MG, QD
     Route: 042
     Dates: start: 20170424, end: 20170427
  2. SEPTRIN [Concomitant]
     Active Substance: SULFAMETHOXAZOLE\TRIMETHOPRIM
     Indication: PROPHYLAXIS
     Dosage: 1 DF
     Route: 048
     Dates: start: 20170328
  3. COLECALCIFEROL [Concomitant]
     Active Substance: CHOLECALCIFEROL
     Indication: PROPHYLAXIS
     Dosage: 396 IU, QD
     Route: 048
     Dates: start: 20170328
  4. ACICLOVIR [Concomitant]
     Active Substance: ACYCLOVIR
     Indication: PROPHYLAXIS
     Dosage: 200 MG
     Route: 048
     Dates: start: 20170328
  5. COLIRCUSI DEXAMETASONA [Concomitant]
     Indication: PROPHYLAXIS
     Dosage: 2 GTT
     Route: 047
     Dates: start: 20170427, end: 20170502
  6. TIOGUANINA ASPEN [Suspect]
     Active Substance: THIOGUANINE ANHYDROUS
     Indication: ACUTE LYMPHOCYTIC LEUKAEMIA
     Dosage: 30 MG, QD
     Route: 048
     Dates: start: 20170420, end: 20170428

REACTIONS (2)
  - Vulvovaginitis [Recovered/Resolved]
  - Cystitis klebsiella [Recovered/Resolved]

NARRATIVE: CASE EVENT DATE: 20170508
